FAERS Safety Report 15233608 (Version 2)
Quarter: 2018Q3

REPORT INFORMATION
  Report Type: Report from Study
  Country: JP (occurrence: JP)
  Receive Date: 20180802
  Receipt Date: 20180806
  Transmission Date: 20181010
  Serious: Yes (Other)
  Sender: FDA-Public Use
  Company Number: JP-PFIZER INC-2018309782

PATIENT
  Sex: Male

DRUGS (4)
  1. TAMSULOSIN HYDROCHLORIDE. [Suspect]
     Active Substance: TAMSULOSIN HYDROCHLORIDE
     Indication: MICTURITION URGENCY
  2. CELECOXIB. [Suspect]
     Active Substance: CELECOXIB
     Indication: POLLAKIURIA
     Dosage: 200 MG, DAILY
  3. CELECOXIB. [Suspect]
     Active Substance: CELECOXIB
     Indication: MICTURITION URGENCY
  4. TAMSULOSIN HYDROCHLORIDE. [Suspect]
     Active Substance: TAMSULOSIN HYDROCHLORIDE
     Indication: POLLAKIURIA
     Dosage: 0.2 MG, DAILY

REACTIONS (1)
  - Urinary retention [Unknown]
